FAERS Safety Report 5329177-0 (Version None)
Quarter: 2007Q2

REPORT INFORMATION
  Report Type: 
  Country: None (occurrence: None)
  Receive Date: 20070518
  Receipt Date: 20070507
  Transmission Date: 20071010
  Serious: Yes (Other)
  Sender: FDA-Public Use
  Company Number: US-PFIZER INC-2007022107

PATIENT
  Sex: Male
  Weight: 122.9 kg

DRUGS (12)
  1. CHANTIX [Suspect]
     Indication: CHRONIC OBSTRUCTIVE PULMONARY DISEASE
     Dates: start: 20070313, end: 20070319
  2. CHANTIX [Interacting]
     Indication: NICOTINE DEPENDENCE
  3. DRUG, UNSPECIFIED [Interacting]
  4. REYATAZ [Concomitant]
  5. RITONAVIR [Concomitant]
  6. ZIAGEN [Concomitant]
  7. ZERIT [Concomitant]
  8. BACTRIM DS [Concomitant]
  9. HYDROCHLOROTHIAZIDE [Concomitant]
  10. ALBUTEROL [Concomitant]
  11. ZOLOFT [Concomitant]
  12. ADVAIR DISKUS 100/50 [Concomitant]

REACTIONS (8)
  - DEHYDRATION [None]
  - DIARRHOEA [None]
  - DRUG INTERACTION [None]
  - GROIN ABSCESS [None]
  - NIGHT BLINDNESS [None]
  - PHARYNGITIS [None]
  - VIRAL INFECTION [None]
  - VISION BLURRED [None]
